FAERS Safety Report 5510082-1 (Version None)
Quarter: 2007Q4

REPORT INFORMATION
  Report Type: 
  Country: None (occurrence: None)
  Receive Date: 20071108
  Receipt Date: 20070209
  Transmission Date: 20080405
  Serious: No
  Sender: FDA-Public Use
  Company Number: US-ABBOTT-07P-163-0359814-00

PATIENT
  Sex: Female
  Weight: 95 kg

DRUGS (1)
  1. TARKA [Suspect]
     Indication: HYPERTENSION
     Route: 048
     Dates: start: 20070202

REACTIONS (2)
  - CARDIAC FLUTTER [None]
  - DRUG INEFFECTIVE [None]
